FAERS Safety Report 14517448 (Version 3)
Quarter: 2018Q2

REPORT INFORMATION
  Report Type: Report from Study
  Country: US (occurrence: US)
  Receive Date: 20180212
  Receipt Date: 20180402
  Transmission Date: 20180711
  Serious: Yes (Hospitalization, Other)
  Sender: FDA-Public Use
  Company Number: US-GILEAD-2018-0320243

PATIENT
  Age: 76 Year
  Sex: Female
  Weight: 52 kg

DRUGS (4)
  1. AMBRISENTAN [Suspect]
     Active Substance: AMBRISENTAN
     Indication: SLEEP APNOEA SYNDROME
  2. AMBRISENTAN [Suspect]
     Active Substance: AMBRISENTAN
     Indication: CARDIAC FAILURE CONGESTIVE
  3. AMBRISENTAN [Suspect]
     Active Substance: AMBRISENTAN
     Indication: CAPILLARY DISORDER
  4. AMBRISENTAN [Suspect]
     Active Substance: AMBRISENTAN
     Indication: PULMONARY HYPERTENSION
     Dosage: 10 MG, QD
     Route: 065
     Dates: start: 20170804, end: 20180212

REACTIONS (8)
  - Nasopharyngitis [Not Recovered/Not Resolved]
  - Malaise [Not Recovered/Not Resolved]
  - Oesophageal mass [Recovered/Resolved]
  - Pleural effusion [Unknown]
  - Acute kidney injury [Not Recovered/Not Resolved]
  - Fluid retention [Unknown]
  - Drug ineffective [Unknown]
  - Cardiac failure congestive [Not Recovered/Not Resolved]

NARRATIVE: CASE EVENT DATE: 20180201
